FAERS Safety Report 17479140 (Version 1)
Quarter: 2020Q1

REPORT INFORMATION
  Report Type: Report from Study
  Country: CO (occurrence: CO)
  Receive Date: 20200228
  Receipt Date: 20200228
  Transmission Date: 20200409
  Serious: Yes (Hospitalization, Other)
  Sender: FDA-Public Use
  Company Number: CO-JNJFOC-20190909648

PATIENT
  Age: 46 Year
  Sex: Male
  Weight: 90 kg

DRUGS (4)
  1. SIMPONI [Suspect]
     Active Substance: GOLIMUMAB
     Route: 058
     Dates: start: 20191108, end: 20191108
  2. ADALIMUMAB [Concomitant]
     Active Substance: ADALIMUMAB
  3. DICLOFENAC [Concomitant]
     Active Substance: DICLOFENAC
  4. SIMPONI [Suspect]
     Active Substance: GOLIMUMAB
     Indication: ANKYLOSING SPONDYLITIS
     Route: 058
     Dates: start: 20180928, end: 20190806

REACTIONS (6)
  - Product dose omission [Unknown]
  - Pleural effusion [Unknown]
  - Pancreatitis [Recovering/Resolving]
  - Blood potassium decreased [Unknown]
  - Chronic gastritis [Unknown]
  - Ankylosing spondylitis [Unknown]

NARRATIVE: CASE EVENT DATE: 2019
